FAERS Safety Report 12475237 (Version 1)
Quarter: 2016Q2

REPORT INFORMATION
  Report Type: Spontaneous
  Country: JP (occurrence: JP)
  Receive Date: 20160617
  Receipt Date: 20160617
  Transmission Date: 20160815
  Serious: Yes (Hospitalization, Other)
  Sender: FDA-Public Use
  Company Number: JP-VIIV HEALTHCARE LIMITED-JP2016JPN084476

PATIENT

DRUGS (14)
  1. SINGULAIR [Concomitant]
     Active Substance: MONTELUKAST SODIUM
  2. THEOLONG [Concomitant]
     Active Substance: THEOPHYLLINE ANHYDROUS
  3. PARIET [Concomitant]
     Active Substance: RABEPRAZOLE SODIUM
  4. ALLEGRA [Concomitant]
     Active Substance: FEXOFENADINE HYDROCHLORIDE
  5. TRIUMEQ [Suspect]
     Active Substance: ABACAVIR SULFATE\DOLUTEGRAVIR SODIUM\LAMIVUDINE
     Dosage: UNK
     Route: 048
     Dates: start: 201602
  6. ONON [Concomitant]
     Active Substance: PRANLUKAST
     Dosage: UNK
     Dates: start: 20160610
  7. BROTIZOLAM [Concomitant]
     Active Substance: BROTIZOLAM
  8. POLARAMINE [Concomitant]
     Active Substance: DEXCHLORPHENIRAMINE MALEATE
     Dosage: UNK
     Dates: start: 20160610
  9. AMBROXOL HYDROCHLORIDE [Concomitant]
     Active Substance: AMBROXOL HYDROCHLORIDE
  10. POLYFUL [Concomitant]
     Active Substance: CALCIUM POLYCARBOPHIL
  11. ULTIBRO [Concomitant]
     Active Substance: GLYCOPYRRONIUM\INDACATEROL
  12. LAC-B [Concomitant]
     Active Substance: BIFIDOBACTERIUM SPP.
  13. GASMOTIN [Concomitant]
     Active Substance: MOSAPRIDE CITRATE
  14. CARBOCISTEINE [Concomitant]
     Active Substance: CARBOCYSTEINE

REACTIONS (4)
  - Chronic obstructive pulmonary disease [Unknown]
  - Rhabdomyolysis [Unknown]
  - Blood lactate dehydrogenase increased [Unknown]
  - Bedridden [Unknown]

NARRATIVE: CASE EVENT DATE: 20160611
